FAERS Safety Report 4497732-6 (Version None)
Quarter: 2004Q4

REPORT INFORMATION
  Report Type: 
  Country: None (occurrence: None)
  Receive Date: 20041104
  Receipt Date: 20041026
  Transmission Date: 20050328
  Serious: Yes (Death)
  Sender: FDA-Public Use
  Company Number: RS004511-J

PATIENT
  Age: 75 Year
  Sex: Male

DRUGS (3)
  1. PARIET            (RABEPRAZOLE) (RABEPRAZOLE SODIUM) [Suspect]
     Indication: ABDOMINAL PAIN UPPER
     Dosage: ORAL
     Route: 048
     Dates: start: 20040512
  2. AMARYL [Concomitant]
  3. AGENTS FOR HYPERLIPIDEMIAS [Concomitant]

REACTIONS (15)
  - ANURIA [None]
  - CARDIAC FAILURE [None]
  - CARDIAC FAILURE CONGESTIVE [None]
  - CARDIAC TAMPONADE [None]
  - CHOKING [None]
  - DEPRESSED LEVEL OF CONSCIOUSNESS [None]
  - HEPATIC CONGESTION [None]
  - HEPATIC ENCEPHALOPATHY [None]
  - HEPATITIS FULMINANT [None]
  - JAUNDICE [None]
  - LIVER DISORDER [None]
  - OCULAR ICTERUS [None]
  - PROTHROMBIN TIME PROLONGED [None]
  - SOMNOLENCE [None]
  - WHITE BLOOD CELL COUNT INCREASED [None]
